FAERS Safety Report 24830574 (Version 5)
Quarter: 2025Q3

REPORT INFORMATION
  Report Type: Report from Study
  Country: CA (occurrence: CA)
  Receive Date: 20250110
  Receipt Date: 20250825
  Transmission Date: 20251020
  Serious: Yes (Hospitalization, Other)
  Sender: TAKEDA
  Company Number: CA-TAKEDA-2021TUS023234

PATIENT
  Age: 74 Year
  Sex: Female

DRUGS (39)
  1. VEDOLIZUMAB [Suspect]
     Active Substance: VEDOLIZUMAB
     Indication: Colitis ulcerative
  2. VEDOLIZUMAB [Suspect]
     Active Substance: VEDOLIZUMAB
  3. VEDOLIZUMAB [Suspect]
     Active Substance: VEDOLIZUMAB
  4. VEDOLIZUMAB [Suspect]
     Active Substance: VEDOLIZUMAB
  5. VEDOLIZUMAB [Suspect]
     Active Substance: VEDOLIZUMAB
  6. VEDOLIZUMAB [Suspect]
     Active Substance: VEDOLIZUMAB
  7. VEDOLIZUMAB [Suspect]
     Active Substance: VEDOLIZUMAB
  8. VEDOLIZUMAB [Suspect]
     Active Substance: VEDOLIZUMAB
  9. VEDOLIZUMAB [Suspect]
     Active Substance: VEDOLIZUMAB
  10. VEDOLIZUMAB [Suspect]
     Active Substance: VEDOLIZUMAB
  11. VEDOLIZUMAB [Suspect]
     Active Substance: VEDOLIZUMAB
  12. VEDOLIZUMAB [Suspect]
     Active Substance: VEDOLIZUMAB
  13. VEDOLIZUMAB [Suspect]
     Active Substance: VEDOLIZUMAB
  14. VEDOLIZUMAB [Suspect]
     Active Substance: VEDOLIZUMAB
  15. VEDOLIZUMAB [Suspect]
     Active Substance: VEDOLIZUMAB
  16. VEDOLIZUMAB [Suspect]
     Active Substance: VEDOLIZUMAB
  17. PENTASA [Concomitant]
     Active Substance: MESALAMINE
     Dosage: 4 GRAM, QD
     Dates: start: 202012
  18. PENTASA [Concomitant]
     Active Substance: MESALAMINE
     Dosage: UNK UNK, BID
  19. PENTASA [Concomitant]
     Active Substance: MESALAMINE
     Dosage: 1 GRAM, BID
  20. DILTIAZEM [Concomitant]
     Active Substance: DILTIAZEM
  21. RABEPRAZOLE [Concomitant]
     Active Substance: RABEPRAZOLE
  22. CANDESARTAN [Concomitant]
     Active Substance: CANDESARTAN
  23. CANDESARTAN [Concomitant]
     Active Substance: CANDESARTAN
  24. HYDROCHLOROTHIAZIDE [Concomitant]
     Active Substance: HYDROCHLOROTHIAZIDE
  25. HYDROCHLOROTHIAZIDE [Concomitant]
     Active Substance: HYDROCHLOROTHIAZIDE
  26. VITAMIN D3 [Concomitant]
     Active Substance: CHOLECALCIFEROL
  27. FERROUS SULFATE [Concomitant]
     Active Substance: FERROUS SULFATE
  28. B12 [Concomitant]
  29. FOLIC ACID [Concomitant]
     Active Substance: FOLIC ACID
  30. PREGABALIN [Concomitant]
     Active Substance: PREGABALIN
     Dosage: 50 MILLIGRAM, TID
  31. NITROGLYCERIN [Concomitant]
     Active Substance: NITROGLYCERIN
  32. ENTOCORT [Concomitant]
     Active Substance: BUDESONIDE
     Dosage: 115 MILLIGRAM, QD
     Dates: start: 202012
  33. ARNUITY ELLIPTA [Concomitant]
     Active Substance: FLUTICASONE FUROATE
     Dosage: 100 MICROGRAM, QD
  34. ALBUTEROL [Concomitant]
     Active Substance: ALBUTEROL
  35. METAMUCIL [Concomitant]
     Active Substance: PLANTAGO SEED
     Dosage: UNK UNK, QD
  36. BUDESONIDE [Concomitant]
     Active Substance: BUDESONIDE
     Dosage: 115 MILLIGRAM, QD
     Dates: start: 202012
  37. ASPIRIN [Concomitant]
     Active Substance: ASPIRIN
  38. AMLODIPINE [Concomitant]
     Active Substance: AMLODIPINE BESYLATE
     Dates: start: 20250407, end: 20250619
  39. HYDROCHLOROTHIAZIDE [Concomitant]
     Active Substance: HYDROCHLOROTHIAZIDE

REACTIONS (8)
  - Transient ischaemic attack [Unknown]
  - Body temperature decreased [Not Recovered/Not Resolved]
  - Blood pressure increased [Not Recovered/Not Resolved]
  - Infusion site extravasation [Unknown]
  - Vascular fragility [Unknown]
  - Joint swelling [Unknown]
  - Peripheral swelling [Unknown]
  - Poor venous access [Unknown]

NARRATIVE: CASE EVENT DATE: 20210407
